FAERS Safety Report 15657440 (Version 1)
Quarter: 2018Q4

REPORT INFORMATION
  Report Type: Spontaneous
  Country: US (occurrence: US)
  Receive Date: 20181126
  Receipt Date: 20181126
  Transmission Date: 20190205
  Serious: No
  Sender: FDA-Public Use
  Company Number: None

PATIENT
  Age: 86 Year
  Sex: Female
  Weight: 47.25 kg

DRUGS (7)
  1. ZANTAC [Concomitant]
     Active Substance: RANITIDINE HYDROCHLORIDE
  2. PROCRIT [Concomitant]
     Active Substance: ERYTHROPOIETIN
  3. IBRANCE [Suspect]
     Active Substance: PALBOCICLIB
     Dosage: ?          OTHER FREQUENCY:EVERY OTHER DAY;?
     Route: 048
  4. METOPROLOL. [Concomitant]
     Active Substance: METOPROLOL
  5. SIMVASTATIN. [Concomitant]
     Active Substance: SIMVASTATIN
  6. NYSTATIN. [Concomitant]
     Active Substance: NYSTATIN
  7. BACTRIM [Concomitant]
     Active Substance: SULFAMETHOXAZOLE\TRIMETHOPRIM

REACTIONS (1)
  - Drug intolerance [None]
